FAERS Safety Report 7117019-2 (Version None)
Quarter: 2010Q4

REPORT INFORMATION
  Report Type: 
  Country: None (occurrence: None)
  Receive Date: 20101122
  Receipt Date: 20101109
  Transmission Date: 20110411
  Serious: Yes (Other)
  Sender: FDA-Public Use
  Company Number: GB-MYLANLABS-2010S1020623

PATIENT
  Age: 39 Year
  Sex: Male

DRUGS (2)
  1. MIRTAZAPINE [Suspect]
     Indication: DEPRESSION
     Route: 048
     Dates: start: 20100806, end: 20100925
  2. FLUOXETINE [Concomitant]
     Indication: DEPRESSION
     Route: 048

REACTIONS (1)
  - MUSCLE SPASMS [None]
